FAERS Safety Report 9515612 (Version 1)
Quarter: 2013Q3

REPORT INFORMATION
  Report Type: Report from Study
  Country: US (occurrence: US)
  Receive Date: 20130911
  Receipt Date: 20130911
  Transmission Date: 20140515
  Serious: Yes (Other)
  Sender: FDA-Public Use
  Company Number: US-ASTELLAS-2013US009373

PATIENT
  Age: 88 Year
  Sex: Male

DRUGS (7)
  1. ERLOTINIB TABLET [Suspect]
     Indication: LUNG CARCINOMA CELL TYPE UNSPECIFIED STAGE IV
     Dosage: 100 MG, UID/QD
     Route: 048
     Dates: start: 20130703, end: 201308
  2. ERLOTINIB TABLET [Suspect]
     Dosage: 50 MG, UID/QD
     Route: 048
     Dates: start: 20130808, end: 20130830
  3. XARELTO [Concomitant]
     Indication: PRODUCT USED FOR UNKNOWN INDICATION
     Dosage: 15 MG, Q12 HOURS
     Route: 065
  4. DIGOXIN [Concomitant]
     Indication: PRODUCT USED FOR UNKNOWN INDICATION
     Dosage: 0.1 MG, UID/QD
     Route: 065
  5. ATENOLOL [Concomitant]
     Indication: PRODUCT USED FOR UNKNOWN INDICATION
     Dosage: 3 DF, UID/QD
     Route: 065
  6. LORATAB [Concomitant]
     Indication: PAIN
     Dosage: 500 MG, PRN
     Route: 065
  7. TYLENOL                            /00020001/ [Concomitant]
     Indication: PRODUCT USED FOR UNKNOWN INDICATION
     Dosage: UNK
     Route: 065

REACTIONS (9)
  - Incorrect dose administered [Unknown]
  - Pulmonary oedema [Recovered/Resolved]
  - Pulmonary embolism [Not Recovered/Not Resolved]
  - Blood glucose increased [Recovered/Resolved]
  - Thrombosis [Not Recovered/Not Resolved]
  - Rash [Not Recovered/Not Resolved]
  - Erythema [Not Recovered/Not Resolved]
  - Dyspnoea [Recovered/Resolved]
  - Pain [Not Recovered/Not Resolved]
